FAERS Safety Report 25345574 (Version 1)
Quarter: 2025Q2

REPORT INFORMATION
  Report Type: Spontaneous
  Country: FR (occurrence: FR)
  Receive Date: 20250522
  Receipt Date: 20250522
  Transmission Date: 20250717
  Serious: Yes (Hospitalization)
  Sender: Norvium Bioscience
  Company Number: FR-Norvium Bioscience LLC-080174

PATIENT
  Age: 76 Year
  Sex: Male

DRUGS (3)
  1. AMLODIPINE BESYLATE [Suspect]
     Active Substance: AMLODIPINE BESYLATE
     Indication: Suicide attempt
  2. CANDESARTAN [Suspect]
     Active Substance: CANDESARTAN
     Indication: Suicide attempt
  3. CELIPROLOL [Suspect]
     Active Substance: CELIPROLOL
     Indication: Suicide attempt

REACTIONS (3)
  - Toxicity to various agents [Unknown]
  - Hypotension [Unknown]
  - Bradycardia [Unknown]
